FAERS Safety Report 6038295-3 (Version None)
Quarter: 2009Q1

REPORT INFORMATION
  Report Type: 
  Country: None (occurrence: None)
  Receive Date: 20090115
  Receipt Date: 20090108
  Transmission Date: 20090719
  Serious: Yes (Hospitalization)
  Sender: FDA-Public Use
  Company Number: PHHO2008GB14944

PATIENT
  Sex: Male
  Weight: 56 kg

DRUGS (5)
  1. ZOLEDRONIC ACID [Suspect]
     Indication: METASTASES TO BONE
     Dosage: 4 MG, EVERY 3 WEEKS
     Route: 042
     Dates: start: 20081030
  2. DOCETAXEL [Suspect]
     Dosage: 75 MG/M2, Q3W
     Dates: start: 20081030
  3. PREDNISOLONE [Concomitant]
     Dosage: 10 MG, QD
     Dates: start: 20081030
  4. VITAMIN D [Concomitant]
     Dosage: UNK
     Dates: start: 20081030
  5. CALCIUM [Concomitant]
     Dosage: UNK
     Dates: start: 20081030

REACTIONS (3)
  - BODY TEMPERATURE INCREASED [None]
  - PAIN [None]
  - TOOTH INFECTION [None]
